FAERS Safety Report 17631546 (Version 2)
Quarter: 2020Q2

REPORT INFORMATION
  Report Type: Spontaneous
  Country: US (occurrence: US)
  Receive Date: 20200406
  Receipt Date: 20200427
  Transmission Date: 20200713
  Serious: No
  Sender: FDA-Public Use
  Company Number: US-ASTRAZENECA-2020SE37740

PATIENT
  Sex: Female

DRUGS (2)
  1. BYDUREON [Suspect]
     Active Substance: EXENATIDE
     Indication: GLYCOSYLATED HAEMOGLOBIN INCREASED
     Route: 058
     Dates: start: 201911
  2. HUMULIN NOS [Concomitant]
     Active Substance: INSULIN HUMAN
     Indication: GLYCOSYLATED HAEMOGLOBIN INCREASED
     Dosage: 70.0USP UNITS UNKNOWN
     Route: 058

REACTIONS (8)
  - Device malfunction [Unknown]
  - Device leakage [Unknown]
  - Injection site haemorrhage [Recovered/Resolved]
  - Needle issue [Unknown]
  - Intentional device misuse [Unknown]
  - Injection site injury [Unknown]
  - Injection site extravasation [Recovered/Resolved]
  - Drug dose omission by device [Unknown]
